FAERS Safety Report 8160162-X (Version None)
Quarter: 2012Q1

REPORT INFORMATION
  Report Type: 
  Country: None (occurrence: None)
  Receive Date: 20120103
  Receipt Date: 20110915
  Transmission Date: 20120608
  Serious: No
  Sender: FDA-Public Use
  Company Number: AE-2011-001583

PATIENT
  Age: 70 Year
  Sex: Male
  Weight: 70.3075 kg

DRUGS (7)
  1. RIBAVIRIN [Concomitant]
  2. LACTULOSE [Concomitant]
  3. PEGASYS [Concomitant]
  4. INCIVEK [Suspect]
     Dosage: 2250 MG (750 MG, 1 IN 8 HR), ORAL
     Route: 048
     Dates: start: 20110709
  5. SYNTHROID [Concomitant]
  6. XIFAXAN (RIFAXIMIN) [Concomitant]
  7. BENICAR [Concomitant]

REACTIONS (7)
  - ANAL PRURITUS [None]
  - HAEMORRHOIDAL HAEMORRHAGE [None]
  - ANAEMIA [None]
  - ANORECTAL DISCOMFORT [None]
  - NAUSEA [None]
  - COUGH [None]
  - ANORECTAL DISORDER [None]
